FAERS Safety Report 6263659-2 (Version None)
Quarter: 2009Q3

REPORT INFORMATION
  Report Type: 
  Country: None (occurrence: None)
  Receive Date: 20090710
  Receipt Date: 20090701
  Transmission Date: 20100115
  Serious: Yes (Hospitalization)
  Sender: FDA-Public Use
  Company Number: US-ELI_LILLY_AND_COMPANY-US200906001497

PATIENT
  Sex: Female
  Weight: 60.771 kg

DRUGS (4)
  1. EVISTA [Suspect]
     Dosage: 60 MG, DAILY (1/D)
     Dates: start: 20071001
  2. FORTEO [Suspect]
     Indication: OSTEOPOROSIS
     Dosage: 20 UG, DAILY (1/D)
     Dates: start: 20090101, end: 20090401
  3. CALCIUM W/VITAMIN D NOS [Concomitant]
  4. THYROID TAB [Concomitant]

REACTIONS (1)
  - OSTEOARTHRITIS [None]
